FAERS Safety Report 11065093 (Version 2)
Quarter: 2015Q2

REPORT INFORMATION
  Report Type: Spontaneous
  Country: US (occurrence: US)
  Receive Date: 20150424
  Receipt Date: 20150525
  Transmission Date: 20150821
  Serious: No
  Sender: FDA-Public Use
  Company Number: US-JNJFOC-20130808764

PATIENT
  Sex: Female
  Weight: 81.65 kg

DRUGS (6)
  1. TOPAMAX [Suspect]
     Active Substance: TOPIRAMATE
     Indication: DEPRESSION
     Dosage: AT NIGHT
     Route: 048
     Dates: start: 1996
  2. TOPAMAX [Suspect]
     Active Substance: TOPIRAMATE
     Indication: PRODUCT USED FOR UNKNOWN INDICATION
     Route: 048
     Dates: start: 1999
  3. TOPIRAMATE. [Suspect]
     Active Substance: TOPIRAMATE
     Indication: PRODUCT USED FOR UNKNOWN INDICATION
     Route: 048
  4. SERTRALINE [Concomitant]
     Active Substance: SERTRALINE HYDROCHLORIDE
     Indication: DEPRESSION
     Route: 048
  5. TOPAMAX [Suspect]
     Active Substance: TOPIRAMATE
     Indication: SEIZURE
     Dosage: AT NIGHT
     Route: 048
     Dates: start: 1996
  6. TOPAMAX [Suspect]
     Active Substance: TOPIRAMATE
     Indication: PRODUCT USED FOR UNKNOWN INDICATION
     Route: 048

REACTIONS (7)
  - Skeletal injury [Not Recovered/Not Resolved]
  - Vitamin D deficiency [Recovered/Resolved]
  - Bone disorder [Not Recovered/Not Resolved]
  - Drug effect decreased [Recovered/Resolved]
  - Adenoma benign [Recovered/Resolved]
  - Body height decreased [Not Recovered/Not Resolved]
  - Electroencephalogram abnormal [Unknown]

NARRATIVE: CASE EVENT DATE: 2010
